FAERS Safety Report 8745973 (Version 2)
Quarter: 2012Q4

REPORT INFORMATION
  Report Type: 
  Country: US (occurrence: US)
  Receive Date: 20120827
  Receipt Date: 20121119
  Transmission Date: 20130627
  Serious: Yes (Death)
  Sender: FDA-Public Use
  Company Number: US-JNJFOC-20120810707

PATIENT
  Sex: Male

DRUGS (2)
  1. FENTANYL [Suspect]
     Indication: ACCIDENTAL EXPOSURE TO PRODUCT
     Route: 062
  2. FENTANYL PATCH [Suspect]
     Indication: ACCIDENTAL EXPOSURE TO PRODUCT
     Route: 062

REACTIONS (3)
  - Toxicity to various agents [Fatal]
  - Accidental exposure to product by child [Fatal]
  - Wrong technique in drug usage process [Fatal]
